FAERS Safety Report 17888243 (Version 1)
Quarter: 2020Q2

REPORT INFORMATION
  Report Type: Spontaneous
  Country: US (occurrence: US)
  Receive Date: 20200611
  Receipt Date: 20200611
  Transmission Date: 20200714
  Serious: Yes (Life-Threatening, Hospitalization)
  Sender: FDA-Public Use
  Company Number: None

PATIENT
  Age: 69 Year
  Sex: Male
  Weight: 103 kg

DRUGS (1)
  1. IOHEXOL (IOHEXOL 388.3MG/ML INJ) [Suspect]
     Active Substance: IOHEXOL
     Indication: CONTRAST MEDIA DEPOSITION
     Dosage: ?          OTHER ROUTE:IV?
     Dates: start: 20200524, end: 20200524

REACTIONS (7)
  - Tachycardia [None]
  - Cyanosis [None]
  - Respiratory distress [None]
  - Tachypnoea [None]
  - Livedo reticularis [None]
  - Hypertension [None]
  - Contrast media reaction [None]

NARRATIVE: CASE EVENT DATE: 20200524
